FAERS Safety Report 7002307-0 (Version None)
Quarter: 2010Q3

REPORT INFORMATION
  Report Type: 
  Country: None (occurrence: None)
  Receive Date: 20100920
  Receipt Date: 20100610
  Transmission Date: 20110219
  Serious: No
  Sender: FDA-Public Use
  Company Number: US-ASTRAZENECA-2010SE27013

PATIENT
  Sex: Female
  Weight: 113.4 kg

DRUGS (4)
  1. SEROQUEL [Suspect]
     Dosage: 100-300 MG AT NIGHT
     Route: 048
  2. PAIN PATCH [Concomitant]
     Indication: PAIN
  3. HAORMONES [Concomitant]
  4. THYROID MEDICATION [Concomitant]
     Indication: THYROID DISORDER

REACTIONS (2)
  - FALL [None]
  - GAIT DISTURBANCE [None]
